FAERS Safety Report 12257722 (Version 1)
Quarter: 2016Q2

REPORT INFORMATION
  Report Type: Spontaneous
  Country: JP (occurrence: JP)
  Receive Date: 20160412
  Receipt Date: 20160412
  Transmission Date: 20160815
  Serious: Yes (Hospitalization)
  Sender: FDA-Public Use
  Company Number: JP-DSJP-DSJ-2016-112309

PATIENT

DRUGS (3)
  1. LITHIUM CARBONATE ^FUJINAGA^ [Concomitant]
     Indication: BIPOLAR DISORDER
     Dosage: 600MG/DAY
     Route: 065
  2. AMLODIPINE                         /00972402/ [Concomitant]
     Active Substance: AMLODIPINE BESYLATE
     Indication: HYPERTENSION
     Dosage: 5MG/DAY
     Route: 065
  3. OLMETEC [Suspect]
     Active Substance: OLMESARTAN MEDOXOMIL
     Indication: HYPERTENSION
     Dosage: 20MG/DAY
     Route: 065

REACTIONS (1)
  - Toxicity to various agents [Recovering/Resolving]
